FAERS Safety Report 7824060-0 (Version None)
Quarter: 2011Q4

REPORT INFORMATION
  Report Type: 
  Country: None (occurrence: None)
  Receive Date: 20111019
  Receipt Date: 20111005
  Transmission Date: 20120403
  Serious: Yes (Other)
  Sender: FDA-Public Use
  Company Number: PHHY2011CH89181

PATIENT
  Age: 75 Year
  Sex: Female

DRUGS (3)
  1. FEMARA [Suspect]
     Indication: METASTASIS
     Dosage: 2.5 MG, DAILY
     Route: 048
     Dates: start: 20110826, end: 20110829
  2. CALCIUM SANDOZ [Concomitant]
     Dates: start: 20110826, end: 20110829
  3. PRAVASTATIN [Concomitant]

REACTIONS (4)
  - VASCULITIS [None]
  - PRURITUS [None]
  - C-REACTIVE PROTEIN INCREASED [None]
  - RASH ERYTHEMATOUS [None]
